FAERS Safety Report 26194639 (Version 1)
Quarter: 2025Q4

REPORT INFORMATION
  Report Type: Spontaneous
  Country: US (occurrence: US)
  Receive Date: 20251224
  Receipt Date: 20251224
  Transmission Date: 20260118
  Serious: No
  Sender: ELI LILLY AND COMPANY
  Company Number: US-ELI_LILLY_AND_COMPANY-US202512023574

PATIENT
  Age: 67 Year
  Sex: Male

DRUGS (2)
  1. BASAGLAR [Suspect]
     Active Substance: INSULIN GLARGINE
     Indication: Diabetes mellitus
     Dosage: 65 U, UNKNOWN
     Route: 065
     Dates: start: 20251216
  2. BASAGLAR [Suspect]
     Active Substance: INSULIN GLARGINE
     Dosage: 65 U, UNKNOWN
     Route: 065
     Dates: start: 20251216

REACTIONS (2)
  - Expired product administered [Unknown]
  - Accidental underdose [Unknown]
